FAERS Safety Report 4529716-3 (Version None)
Quarter: 2004Q4

REPORT INFORMATION
  Report Type: 
  Country: None (occurrence: None)
  Receive Date: 20041130
  Receipt Date: 20040805
  Transmission Date: 20050328
  Serious: No
  Sender: FDA-Public Use
  Company Number: 702203

PATIENT
  Age: 47 Year
  Sex: Female
  Weight: 77.1115 kg

DRUGS (1)
  1. AMEVIVE [Suspect]
     Indication: PSORIASIS
     Dosage: 15 MG QW IM
     Route: 030
     Dates: start: 20031203, end: 20040226

REACTIONS (9)
  - BLINDNESS TRANSIENT [None]
  - BRONCHITIS [None]
  - DIPLOPIA [None]
  - EYE PAIN [None]
  - EYE REDNESS [None]
  - INTRAOCULAR PRESSURE INCREASED [None]
  - PHARYNGITIS [None]
  - SINUSITIS [None]
  - VISION BLURRED [None]
